FAERS Safety Report 9679129 (Version 1)
Quarter: 2013Q4

REPORT INFORMATION
  Report Type: Spontaneous
  Country: NL (occurrence: None)
  Receive Date: 20131107
  Receipt Date: 20131107
  Transmission Date: 20140711
  Serious: Yes (Hospitalization)
  Sender: FDA-Public Use
  Company Number: 2013PL000181

PATIENT
  Age: 57 Year
  Sex: Female

DRUGS (4)
  1. MERCAPTOPURINE [Suspect]
     Indication: CROHN^S DISEASE
  2. AZATHIOPRINE (AZATHIOPRINE) [Suspect]
     Indication: CROHN^S DISEASE
  3. PREDNISONE [Concomitant]
  4. BUDESONIDE [Concomitant]

REACTIONS (1)
  - Pancreatitis acute [None]
